FAERS Safety Report 11588997 (Version 1)
Quarter: 2015Q4

REPORT INFORMATION
  Report Type: Spontaneous
  Country: US (occurrence: None)
  Receive Date: 20151001
  Receipt Date: 20151001
  Transmission Date: 20160304
  Serious: Yes (Hospitalization)
  Sender: FDA-Public Use
  Company Number: None

PATIENT
  Age: 68 Year
  Sex: Male
  Weight: 80 kg

DRUGS (2)
  1. WARFARIN [Suspect]
     Active Substance: WARFARIN
     Indication: DEEP VEIN THROMBOSIS
     Route: 048
     Dates: start: 20130312
  2. WARFARIN [Suspect]
     Active Substance: WARFARIN
     Indication: COAGULATION FACTOR VIII LEVEL INCREASED
     Route: 048
     Dates: start: 20130312

REACTIONS (2)
  - International normalised ratio increased [None]
  - Epistaxis [None]

NARRATIVE: CASE EVENT DATE: 20150706
